FAERS Safety Report 4802856-7 (Version None)
Quarter: 2005Q4

REPORT INFORMATION
  Report Type: 
  Country: None (occurrence: None)
  Receive Date: 20051017
  Receipt Date: 20051017
  Transmission Date: 20060501
  Serious: No
  Sender: FDA-Public Use
  Company Number: None

PATIENT
  Age: 90 Year
  Sex: Female

DRUGS (2)
  1. MICARDIS [Suspect]
     Indication: RENAL FAILURE ACUTE
     Dosage: 40 MG PO DAILY
     Route: 048
  2. LOSARTAN POTASSIUM [Suspect]
     Indication: HYPERKALAEMIA
     Dosage: 50 MG PO DAILY
     Route: 048

REACTIONS (2)
  - RENAL FAILURE ACUTE [None]
  - URINARY TRACT INFECTION [None]
